FAERS Safety Report 5040193-9 (Version None)
Quarter: 2006Q2

REPORT INFORMATION
  Report Type: 
  Country: None (occurrence: None)
  Receive Date: 20060630
  Receipt Date: 20060619
  Transmission Date: 20061013
  Serious: Yes (Other)
  Sender: FDA-Public Use
  Company Number: US-MERCK-0606USA03763

PATIENT

DRUGS (1)
  1. SINGULAIR [Suspect]
     Indication: RHINITIS SEASONAL

REACTIONS (3)
  - ASCITES [None]
  - DRUG EXPOSURE DURING PREGNANCY [None]
  - FOETAL DISORDER [None]
